FAERS Safety Report 9337827 (Version 2)
Quarter: 2013Q3

REPORT INFORMATION
  Report Type: Spontaneous
  Country: US (occurrence: US)
  Receive Date: 20130607
  Receipt Date: 20130829
  Transmission Date: 20140515
  Serious: Yes (Hospitalization)
  Sender: FDA-Public Use
  Company Number: US-B.I. PHARMACEUTICALS,INC./RIDGEFIELD-2013-BI-15826BP

PATIENT
  Age: 68 Year
  Sex: Female
  Weight: 31 kg

DRUGS (4)
  1. COMBIVENT [Suspect]
     Indication: DYSPNOEA
     Dosage: STRENGTH: 18 MCG / 103 MCG;
     Route: 055
     Dates: start: 2009
  2. CALCIUM [Concomitant]
     Indication: SUPPLEMENTATION THERAPY
     Route: 048
  3. PERCOCET [Concomitant]
     Indication: SPINAL COLUMN STENOSIS
     Dosage: STRENGTH: 1 TABLET;
     Route: 048
  4. VITAMIN D [Concomitant]
     Indication: SUPPLEMENTATION THERAPY
     Route: 048

REACTIONS (8)
  - Spinal column stenosis [Not Recovered/Not Resolved]
  - Hip fracture [Recovered/Resolved with Sequelae]
  - Fall [Recovered/Resolved]
  - Nerve injury [Not Recovered/Not Resolved]
  - Muscle spasms [Not Recovered/Not Resolved]
  - Body height decreased [Not Recovered/Not Resolved]
  - Oedema peripheral [Recovered/Resolved]
  - Ligament sprain [Recovered/Resolved]
